FAERS Safety Report 23195243 (Version 1)
Quarter: 2023Q4

REPORT INFORMATION
  Report Type: Spontaneous
  Country: US (occurrence: US)
  Receive Date: 20231117
  Receipt Date: 20231117
  Transmission Date: 20240110
  Serious: Yes (Other)
  Sender: FDA-Public Use
  Company Number: US-ALKEM LABORATORIES LIMITED-US-ALKEM-2023-01890

PATIENT
  Age: 50 Year
  Sex: Male

DRUGS (2)
  1. OLANZAPINE [Suspect]
     Active Substance: OLANZAPINE
     Indication: Schizophrenia
     Dosage: 20 MG/DAY
     Route: 065
  2. FLUPHENAZINE DECANOATE [Suspect]
     Active Substance: FLUPHENAZINE DECANOATE
     Indication: Schizophrenia
     Dosage: 37.5 MILLIGRAM EVERY 2 WEEKS
     Route: 065

REACTIONS (3)
  - Tardive dyskinesia [Recovering/Resolving]
  - Dysphagia [Recovering/Resolving]
  - Withdrawal syndrome [Recovering/Resolving]
